FAERS Safety Report 5874047-2 (Version None)
Quarter: 2008Q3

REPORT INFORMATION
  Report Type: 
  Country: None (occurrence: None)
  Receive Date: 20080829
  Receipt Date: 20080821
  Transmission Date: 20090109
  Serious: Yes (Other)
  Sender: FDA-Public Use
  Company Number: 2008SP017214

PATIENT
  Age: 67 Year
  Sex: Female
  Weight: 42 kg

DRUGS (15)
  1. NITRO-DUR [Suspect]
     Indication: DRUG USE FOR UNKNOWN INDICATION
     Dosage: TDER
     Route: 062
  2. METOPROLOL (CON.) [Concomitant]
  3. CLOPIDOGREL (CON.) [Concomitant]
  4. CALCITRIOL (CON.) [Concomitant]
  5. IRBESARTAN (CON.) [Concomitant]
  6. ACTONEL (CON.) [Concomitant]
  7. LACTULOSE (CON.) [Concomitant]
  8. LORAZEPAM (CON.) [Concomitant]
  9. CITALOPRAM (CON.) [Concomitant]
  10. EPREX (CON.) [Concomitant]
  11. CODEINE (CON.) [Concomitant]
  12. LIPITOR (CON.) [Concomitant]
  13. REPLAVITE (B VITAMINS, VITAMIN C, FOLATE) NICOTINAMIDE, CALCIUM) (CON. [Concomitant]
  14. FUROSEMIDE (CON.) [Concomitant]
  15. CALCIUM CARBONATE (CON.) [Concomitant]

REACTIONS (1)
  - THROMBOCYTOPENIA [None]
